FAERS Safety Report 9100754 (Version 1)
Quarter: 2013Q1

REPORT INFORMATION
  Report Type: Spontaneous
  Country: US (occurrence: US)
  Receive Date: 20130215
  Receipt Date: 20130215
  Transmission Date: 20140127
  Serious: Yes (Other)
  Sender: FDA-Public Use
  Company Number: US-PFIZER INC-2013058530

PATIENT
  Sex: 0

DRUGS (1)
  1. TYGACIL [Suspect]
     Dosage: UNK

REACTIONS (2)
  - Hyperbilirubinaemia [Unknown]
  - Transaminases increased [Unknown]
